FAERS Safety Report 6536514-8 (Version None)
Quarter: 2010Q1

REPORT INFORMATION
  Report Type: 
  Country: None (occurrence: None)
  Receive Date: 20100106
  Receipt Date: 20091217
  Transmission Date: 20100710
  Serious: No
  Sender: FDA-Public Use
  Company Number: B0610741A

PATIENT
  Age: 27 Year
  Sex: Male

DRUGS (1)
  1. RANITIDINE HYDROCHLORIDE [Suspect]
     Indication: ABDOMINAL PAIN UPPER

REACTIONS (6)
  - CHOLELITHIASIS [None]
  - CHOLESTASIS [None]
  - FIBROSIS [None]
  - HEPATITIS [None]
  - INTERNATIONAL NORMALISED RATIO INCREASED [None]
  - SELF-MEDICATION [None]
